FAERS Safety Report 7711562-0 (Version None)
Quarter: 2011Q3

REPORT INFORMATION
  Report Type: 
  Country: None (occurrence: None)
  Receive Date: 20110822
  Receipt Date: 20110810
  Transmission Date: 20111222
  Serious: Yes (Hospitalization)
  Sender: FDA-Public Use
  Company Number: 2011SP037694

PATIENT
  Age: 25 Year
  Sex: Female

DRUGS (3)
  1. FLATORIL [Concomitant]
  2. OMEPRAZOLE [Concomitant]
  3. DESOGESTREL AND ETHINYL ESTRADIOL [Suspect]
     Indication: CONTRACEPTION
     Dosage: QD;PO
     Route: 048
     Dates: start: 20090218, end: 20090307

REACTIONS (7)
  - ASTHENIA [None]
  - BUDD-CHIARI SYNDROME [None]
  - PLATELET COUNT DECREASED [None]
  - CONSTIPATION [None]
  - ABDOMINAL DISTENSION [None]
  - OEDEMA PERIPHERAL [None]
  - CARDIOLIPIN ANTIBODY POSITIVE [None]
